FAERS Safety Report 5480246-4 (Version None)
Quarter: 2007Q4

REPORT INFORMATION
  Report Type: 
  Country: None (occurrence: None)
  Receive Date: 20071009
  Receipt Date: 20071001
  Transmission Date: 20080405
  Serious: Yes (Other)
  Sender: FDA-Public Use
  Company Number: PHRM2007FR02316

PATIENT
  Age: 70 Year
  Sex: Male

DRUGS (1)
  1. RECLAST [Suspect]
     Route: 042

REACTIONS (2)
  - CEREBROVASCULAR ACCIDENT [None]
  - THROMBOSIS [None]
